FAERS Safety Report 4835902-5 (Version None)
Quarter: 2005Q4

REPORT INFORMATION
  Report Type: 
  Country: None (occurrence: None)
  Receive Date: 20051118
  Receipt Date: 20051110
  Transmission Date: 20060501
  Serious: Yes (Other)
  Sender: FDA-Public Use
  Company Number: 006056

PATIENT
  Sex: Female

DRUGS (4)
  1. MEDROXYPROGESTERONE [Suspect]
     Dosage: ORAL
     Route: 048
     Dates: start: 19910128, end: 19990501
  2. PREMARIN [Suspect]
     Dosage: ORAL
     Route: 048
     Dates: start: 19910128, end: 19990501
  3. PROVERA [Suspect]
     Dosage: ORAL
     Route: 048
     Dates: start: 19910128, end: 19990501
  4. PREMPRO [Suspect]
     Dosage: ORAL
     Route: 048
     Dates: start: 19990501, end: 20021031

REACTIONS (3)
  - BREAST CANCER FEMALE [None]
  - OESTROGEN RECEPTOR ASSAY POSITIVE [None]
  - PROGESTERONE RECEPTOR ASSAY POSITIVE [None]
